FAERS Safety Report 8306603-6 (Version None)
Quarter: 2012Q1

REPORT INFORMATION
  Report Type: 
  Country: None (occurrence: None)
  Receive Date: 20120327
  Receipt Date: 20100420
  Transmission Date: 20120608
  Serious: Yes (Other)
  Sender: FDA-Public Use
  Company Number: PHEH2009US16654

PATIENT
  Age: 67 Year
  Sex: Female
  Weight: 74.8 kg

DRUGS (22)
  1. FOLIC ACID [Concomitant]
  2. DOCUSATE [Concomitant]
  3. SODIUM POLYSTYRENE SULFONATE (SODIUM POLYSTYRENE SULFONATE) [Concomitant]
  4. CATAPRES-TTS-1 [Concomitant]
  5. NEXIUM [Concomitant]
  6. IRON (IRON) [Concomitant]
  7. PROCRIT [Concomitant]
  8. DETROL [Concomitant]
  9. VICODIN [Concomitant]
  10. GLEEVEC [Suspect]
     Indication: GASTRIC NEOPLASM
     Dosage: 400 MG, DAILY, ORAL
     Route: 048
     Dates: start: 20091027
  11. SENNA (SENNA, SENNA ALEXANDRINA) [Concomitant]
  12. ONDANSETRON [Concomitant]
  13. SYNTHROID [Concomitant]
  14. VITAMIN B12 [Concomitant]
  15. BLACK COHOSH (CIMCIFUGA RACEMOSA ROOT) [Concomitant]
  16. REMERON [Concomitant]
  17. TRAZODONE HCL [Concomitant]
  18. SODIUM BICARBONATE [Concomitant]
  19. FLEXERIL [Concomitant]
  20. BIOTIN [Concomitant]
  21. ASPIRIN [Concomitant]
  22. NICOTINE [Concomitant]

REACTIONS (6)
  - NAUSEA [None]
  - VOMITING [None]
  - HYPERKALAEMIA [None]
  - FLUID RETENTION [None]
  - DECREASED APPETITE [None]
  - MUSCLE SPASMS [None]
